FAERS Safety Report 5849521-5 (Version None)
Quarter: 2008Q3

REPORT INFORMATION
  Report Type: 
  Country: None (occurrence: None)
  Receive Date: 20080819
  Receipt Date: 20080811
  Transmission Date: 20090109
  Serious: Yes (Life-Threatening, Hospitalization, Other)
  Sender: FDA-Public Use
  Company Number: B0524918A

PATIENT
  Age: 39 Year
  Sex: Female

DRUGS (4)
  1. ZYBAN [Suspect]
     Dosage: 150MG PER DAY
     Route: 048
     Dates: start: 20070206, end: 20070216
  2. PROCHLORPERAZINE [Concomitant]
     Dates: start: 20070529
  3. DOMPERIDONE [Concomitant]
     Dosage: 10MG THREE TIMES PER DAY
     Dates: start: 20070518
  4. FEXOFENADINE [Concomitant]
     Dates: start: 20070305

REACTIONS (17)
  - ABDOMINAL PAIN [None]
  - ALANINE AMINOTRANSFERASE INCREASED [None]
  - ANOREXIA [None]
  - ASCITES [None]
  - BLOOD BILIRUBIN INCREASED [None]
  - BLOOD SODIUM DECREASED [None]
  - FATIGUE [None]
  - HEPATIC FAILURE [None]
  - HEPATIC FUNCTION ABNORMAL [None]
  - INTERNATIONAL NORMALISED RATIO INCREASED [None]
  - JAUNDICE [None]
  - LIVER INJURY [None]
  - LOWER RESPIRATORY TRACT INFECTION [None]
  - MALAISE [None]
  - NAUSEA [None]
  - RASH [None]
  - URTICARIA [None]
